FAERS Safety Report 7747519-3 (Version None)
Quarter: 2011Q3

REPORT INFORMATION
  Report Type: 
  Country: None (occurrence: None)
  Receive Date: 20110913
  Receipt Date: 20110906
  Transmission Date: 20111222
  Serious: Yes (Other)
  Sender: FDA-Public Use
  Company Number: US-PFIZER INC-2011209294

PATIENT
  Sex: Female
  Weight: 122 kg

DRUGS (10)
  1. GLUCOPHAGE [Concomitant]
     Indication: DIABETES MELLITUS
     Dosage: UNK
  2. ALPRAZOLAM [Concomitant]
     Dosage: UNK
  3. PERCOCET [Concomitant]
     Indication: BACK PAIN
     Dosage: UNK
  4. PERCOCET [Concomitant]
     Indication: ARTHRALGIA
  5. LYRICA [Concomitant]
     Indication: NEUROPATHY PERIPHERAL
     Dosage: UNK
  6. IBUPROFEN [Concomitant]
     Indication: BACK PAIN
     Dosage: UNK
  7. IBUPROFEN [Concomitant]
     Indication: ARTHRALGIA
  8. PERCOCET [Concomitant]
     Indication: NEURALGIA
  9. TOVIAZ [Suspect]
     Indication: URINARY INCONTINENCE
     Dosage: 4 MG, 1X/DAY
     Route: 048
     Dates: start: 20110902, end: 20110903
  10. LASIX [Concomitant]
     Dosage: UNK

REACTIONS (3)
  - BLINDNESS UNILATERAL [None]
  - DRY MOUTH [None]
  - VISION BLURRED [None]
